FAERS Safety Report 24308299 (Version 1)
Quarter: 2024Q3

REPORT INFORMATION
  Report Type: Spontaneous
  Country: HU (occurrence: HU)
  Receive Date: 20240911
  Receipt Date: 20240911
  Transmission Date: 20241017
  Serious: Yes (Hospitalization, Other)
  Sender: SANDOZ
  Company Number: HU-TEVA-VS-3238573

PATIENT
  Age: 7 Year
  Sex: Male

DRUGS (15)
  1. ASPARAGINASE [Suspect]
     Active Substance: ASPARAGINASE
     Indication: B precursor type acute leukaemia
     Dosage: ALL IC BFM PROTOCOLUNK
     Route: 065
     Dates: start: 2009
  2. ASPARAGINASE [Suspect]
     Active Substance: ASPARAGINASE
     Dosage: ALL-IC-REL V1.1 PROTOCOLUNK
     Route: 065
  3. CYTARABINE [Suspect]
     Active Substance: CYTARABINE
     Dosage: ALL IC BFM PROTOCOLUNK
     Route: 065
     Dates: start: 2009
  4. CYTARABINE [Suspect]
     Active Substance: CYTARABINE
     Indication: B precursor type acute leukaemia
     Dosage: ALL-IC-REL V1.1 PROTOCOLUNK
     Route: 065
  5. CYCLOPHOSPHAMIDE [Suspect]
     Active Substance: CYCLOPHOSPHAMIDE
     Indication: B precursor type acute leukaemia
     Dosage: ALL IC BFM PROTOCOLUNK
     Route: 065
     Dates: start: 2009
  6. DECADRON (DEXAMETHASONE SODIUM PHOSPHATE) [Suspect]
     Active Substance: DEXAMETHASONE SODIUM PHOSPHATE
     Indication: B precursor type acute leukaemia
     Dosage: ALL-IC-REL V1.1 PROTOCOLUNK
     Route: 065
  7. METHOTREXATE [Suspect]
     Active Substance: METHOTREXATE
     Indication: B precursor type acute leukaemia
     Dosage: ALL IC BFM PROTOCOLUNK
     Route: 065
     Dates: start: 2009
  8. METHOTREXATE [Suspect]
     Active Substance: METHOTREXATE
     Dosage: MAINTENANCE TREATMENTUNK
     Route: 065
     Dates: start: 2022
  9. VINCRISTINE [Suspect]
     Active Substance: VINCRISTINE
     Indication: B precursor type acute leukaemia
     Dosage: ALL IC BFM PROTOCOLUNK
     Route: 065
     Dates: start: 2009
  10. VINCRISTINE [Suspect]
     Active Substance: VINCRISTINE
     Dosage: ALL-IC-REL V1.1 PROTOCOLUNK
     Route: 065
  11. DAUNORUBICIN [Concomitant]
     Active Substance: DAUNORUBICIN
     Indication: B precursor type acute leukaemia
     Dosage: ALL IC BFM PROTOCOLUNK
     Route: 065
     Dates: start: 2009
  12. MERCAPTOPURINE [Concomitant]
     Active Substance: MERCAPTOPURINE
     Dosage: ALL IC BFM PROTOCOLUNK
     Route: 065
     Dates: start: 2009
  13. MERCAPTOPURINE [Concomitant]
     Active Substance: MERCAPTOPURINE
     Indication: B precursor type acute leukaemia
     Dosage: MAINTENANCE TREATMENTUNK
     Route: 065
     Dates: start: 2022
  14. PREDNISOLONE [Concomitant]
     Active Substance: PREDNISOLONE
     Indication: B precursor type acute leukaemia
     Dosage: ALL IC BFM PROTOCOLUNK
     Route: 065
     Dates: start: 2009
  15. PREDNISOLONE [Concomitant]
     Active Substance: PREDNISOLONE
     Dosage: ALL-IC-REL V1.1 PROTOCOLUNK
     Route: 065

REACTIONS (3)
  - Subdural haemorrhage [Unknown]
  - Cerebral atrophy [Unknown]
  - Nervous system disorder [Unknown]

NARRATIVE: CASE EVENT DATE: 20230101
